FAERS Safety Report 18941993 (Version 2)
Quarter: 2021Q3

REPORT INFORMATION
  Report Type: Spontaneous
  Country: US (occurrence: US)
  Receive Date: 20210225
  Receipt Date: 20210712
  Transmission Date: 20211014
  Serious: Yes (Other)
  Sender: FDA-Public Use
  Company Number: US-TEVA-2021-US-1882861

PATIENT
  Age: 85 Year
  Sex: Male

DRUGS (2)
  1. LEVOFLOXACIN. [Suspect]
     Active Substance: LEVOFLOXACIN
     Indication: MORAXELLA INFECTION
     Route: 065
  2. PEMBROLIZUMAB. [Suspect]
     Active Substance: PEMBROLIZUMAB
     Indication: METASTATIC MALIGNANT MELANOMA
     Dosage: RECEIVED TOTAL THREE DOSES
     Route: 065

REACTIONS (6)
  - Immune-mediated lung disease [Recovering/Resolving]
  - Immune-mediated adverse reaction [Recovering/Resolving]
  - Drug ineffective [Unknown]
  - Diabetes mellitus [Recovering/Resolving]
  - Immune-mediated hypothyroidism [Recovering/Resolving]
  - Polymyalgia rheumatica [Recovered/Resolved]
